FAERS Safety Report 6113843-3 (Version None)
Quarter: 2009Q1

REPORT INFORMATION
  Report Type: 
  Country: None (occurrence: None)
  Receive Date: 20090312
  Receipt Date: 20090304
  Transmission Date: 20090719
  Serious: Yes (Other)
  Sender: FDA-Public Use
  Company Number: US-BAXTER-2009BH003691

PATIENT
  Age: 60 Year
  Sex: Female

DRUGS (1)
  1. DURAMORPH PF [Suspect]
     Indication: PAIN
     Route: 037
     Dates: start: 19920924, end: 19921029

REACTIONS (1)
  - OVERDOSE [None]
